FAERS Safety Report 6948279 (Version 2)
Quarter: 2012Q4

REPORT INFORMATION
  Report Type: 
  Country: US (occurrence: US)
  Receive Date: 20090323
  Receipt Date: 20121018
  Transmission Date: 20130627
  Serious: Yes (Other)
  Sender: FDA-Public Use
  Company Number: US-PFIZER INC-2006072095

PATIENT
  Age: 56 Year
  Sex: Female

DRUGS (10)
  1. PROVERA [Suspect]
     Indication: HORMONE REPLACEMENT THERAPY
     Dosage: 10mg/2.5
     Route: 048
     Dates: start: 199308, end: 2002
  2. MEDROXYPROGESTERONE ACETATE [Suspect]
     Indication: HORMONE REPLACEMENT THERAPY
     Dosage: UNK
     Route: 048
     Dates: start: 199802
  3. MEDROXYPROGESTERONE ACETATE [Suspect]
     Dosage: UNK
     Route: 048
     Dates: start: 199910, end: 200201
  4. PREMPRO [Suspect]
     Indication: HORMONE REPLACEMENT THERAPY
     Dosage: 0.625/2.5
     Dates: start: 199902, end: 199905
  5. PREMARIN [Suspect]
     Indication: HORMONE REPLACEMENT THERAPY
     Dosage: 0.3 mg, UNK
     Dates: start: 199906
  6. ESTRADIOL [Suspect]
     Indication: HORMONE REPLACEMENT THERAPY
     Dosage: UNK
     Dates: start: 199802
  7. ESTRADIOL [Suspect]
     Dosage: UNK
     Dates: start: 199910, end: 1999
  8. ESTRADIOL [Suspect]
     Dosage: UNK
     Dates: start: 200201, end: 200201
  9. ESTRACE [Suspect]
     Indication: HORMONE REPLACEMENT THERAPY
     Dosage: UNK
     Dates: start: 199911, end: 2001
  10. CYCRIN [Suspect]
     Indication: HORMONE REPLACEMENT THERAPY
     Dosage: UNK

REACTIONS (1)
  - Breast cancer female [Unknown]
